FAERS Safety Report 10102668 (Version 2)
Quarter: 2014Q2

REPORT INFORMATION
  Report Type: Spontaneous
  Country: PL (occurrence: PL)
  Receive Date: 20140424
  Receipt Date: 20140424
  Transmission Date: 20141212
  Serious: Yes (Disabling)
  Sender: FDA-Public Use
  Company Number: PL-009507513-1403POL004351

PATIENT
  Age: 55 Year
  Sex: Female
  Weight: 50 kg

DRUGS (4)
  1. TIMOTHY GRASS POLLEN ALLERGEN EXTRACT [Suspect]
     Indication: PRODUCT USED FOR UNKNOWN INDICATION
     Dosage: 75000 SQ-T; ORAL LYOPHILISATE; SUBLINGUAL; DAILY
     Route: 060
     Dates: start: 20140201, end: 20140218
  2. INDAPAMIDE [Concomitant]
     Dosage: 5 MG, PO
     Route: 048
  3. RUPATADINE [Concomitant]
     Dosage: 10 MG, PO
     Route: 048
     Dates: start: 20140107
  4. FLUTICASONE [Concomitant]
     Dosage: UNK
     Route: 045
     Dates: start: 20140107

REACTIONS (6)
  - Coeliac disease [Recovered/Resolved]
  - Condition aggravated [Recovered/Resolved]
  - Face oedema [Recovered/Resolved]
  - Laryngeal discomfort [Recovered/Resolved]
  - Diarrhoea [Recovered/Resolved]
  - Contraindication to medical treatment [Unknown]
